FAERS Safety Report 5618673-4 (Version None)
Quarter: 2008Q1

REPORT INFORMATION
  Report Type: 
  Country: None (occurrence: None)
  Receive Date: 20080205
  Receipt Date: 20080107
  Transmission Date: 20080703
  Serious: Yes (Other)
  Sender: FDA-Public Use
  Company Number: ADE# 08-004

PATIENT
  Sex: Male
  Weight: 82.1011 kg

DRUGS (5)
  1. TRAMADOL HCL [Suspect]
     Indication: MUSCULOSKELETAL PAIN
     Dates: start: 20080103, end: 20080104
  2. ATENOLOL [Concomitant]
  3. ASPIRIN [Concomitant]
  4. VYTORIN [Concomitant]
  5. PLAVIX [Concomitant]

REACTIONS (6)
  - BLOOD PRESSURE INCREASED [None]
  - DIZZINESS [None]
  - FEELING ABNORMAL [None]
  - FEELING HOT [None]
  - HEADACHE [None]
  - HYPERVENTILATION [None]
